FAERS Safety Report 10650568 (Version 2)
Quarter: 2014Q4

REPORT INFORMATION
  Report Type: Spontaneous
  Country: US (occurrence: US)
  Receive Date: 20141214
  Receipt Date: 20141214
  Transmission Date: 20150529
  Serious: No
  Sender: FDA-Public Use
  Company Number: US-BAUSCH-SYM-2014-19904

PATIENT
  Age: 72 Year
  Sex: Male

DRUGS (2)
  1. XENAZINE [Suspect]
     Active Substance: TETRABENAZINE
     Indication: DYSKINESIA
     Route: 048
     Dates: start: 20130502, end: 20140414
  2. XENAZINE [Suspect]
     Active Substance: TETRABENAZINE
     Route: 048
     Dates: start: 20130604

REACTIONS (5)
  - Muscular weakness [Unknown]
  - Off label use [Unknown]
  - Drug administration error [Unknown]
  - Restlessness [Unknown]
  - Somnolence [Unknown]

NARRATIVE: CASE EVENT DATE: 20140414
